FAERS Safety Report 7326909-7 (Version None)
Quarter: 2011Q1

REPORT INFORMATION
  Report Type: 
  Country: None (occurrence: None)
  Receive Date: 20110222
  Receipt Date: 20110203
  Transmission Date: 20110831
  Serious: Yes (Other)
  Sender: FDA-Public Use
  Company Number: 2011SP005299

PATIENT
  Age: 19 Year
  Sex: Female

DRUGS (2)
  1. IRON SUPPLEMENT [Concomitant]
  2. NUVARING [Suspect]
     Indication: CONTRACEPTION
     Dosage: 1 DF; VAG
     Route: 067
     Dates: start: 20110124

REACTIONS (2)
  - SWELLING FACE [None]
  - EYE SWELLING [None]
